FAERS Safety Report 23750941 (Version 3)
Quarter: 2024Q2

REPORT INFORMATION
  Report Type: Report from Study
  Country: CA (occurrence: CA)
  Receive Date: 20240417
  Receipt Date: 20240514
  Transmission Date: 20240715
  Serious: No
  Sender: FDA-Public Use
  Company Number: CA-IPSEN Group, Research and Development-2024-06267

PATIENT
  Sex: Male

DRUGS (1)
  1. LANREOTIDE ACETATE [Suspect]
     Active Substance: LANREOTIDE ACETATE
     Indication: Gastroenteropancreatic neuroendocrine tumour disease
     Route: 065
     Dates: start: 20221013

REACTIONS (3)
  - Hypotension [Unknown]
  - Dehydration [Unknown]
  - Diarrhoea [Unknown]
